FAERS Safety Report 5140535-X (Version None)
Quarter: 2006Q4

REPORT INFORMATION
  Report Type: 
  Country: None (occurrence: None)
  Receive Date: 20061025
  Receipt Date: 20061009
  Transmission Date: 20070319
  Serious: Yes (Hospitalization)
  Sender: FDA-Public Use
  Company Number: S06-FRA-04367-01

PATIENT
  Age: 73 Year
  Sex: Female

DRUGS (4)
  1. EBIXA (MEMANTINE) [Suspect]
     Indication: DEMENTIA ALZHEIMER'S TYPE
     Dates: start: 20060601, end: 20060722
  2. IMOVANE (ZOPICLONE) [Concomitant]
  3. ARICEPT [Concomitant]
  4. SPASFON [Concomitant]

REACTIONS (4)
  - ACUTE GENERALISED EXANTHEMATOUS PUSTULOSIS [None]
  - BLISTER [None]
  - CONFUSIONAL STATE [None]
  - WHITE BLOOD CELL COUNT INCREASED [None]
